FAERS Safety Report 14969064 (Version 1)
Quarter: 2018Q2

REPORT INFORMATION
  Report Type: Report from Study
  Country: None (occurrence: US)
  Receive Date: 20180604
  Receipt Date: 20180604
  Transmission Date: 20180711
  Serious: Yes (Hospitalization, Other)
  Sender: FDA-Public Use
  Company Number: US-ABBVIE-18K-163-2364157-00

PATIENT
  Sex: Male

DRUGS (1)
  1. DUOPA [Suspect]
     Active Substance: CARBIDOPA\LEVODOPA
     Indication: PARKINSON^S DISEASE
     Route: 050
     Dates: start: 20180215

REACTIONS (7)
  - Blood potassium increased [Recovered/Resolved]
  - Wrong technique in device usage process [Recovered/Resolved]
  - Weight decreased [Not Recovered/Not Resolved]
  - Internal haemorrhage [Recovered/Resolved]
  - Dehydration [Recovered/Resolved]
  - Joint swelling [Recovering/Resolving]
  - Diarrhoea [Recovering/Resolving]

NARRATIVE: CASE EVENT DATE: 2018
